FAERS Safety Report 9688288 (Version 3)
Quarter: 2020Q1

REPORT INFORMATION
  Report Type: Report from Study
  Country: US (occurrence: US)
  Receive Date: 20131114
  Receipt Date: 20200220
  Transmission Date: 20200409
  Serious: Yes (Other)
  Sender: FDA-Public Use
  Company Number: US-SA-2013SA095684

PATIENT
  Age: 55 Year
  Sex: Female

DRUGS (6)
  1. TERIFLUNOMIDE. [Suspect]
     Active Substance: TERIFLUNOMIDE
     Dosage: UNK, BIW
     Dates: start: 20190921, end: 201909
  2. TERIFLUNOMIDE. [Suspect]
     Active Substance: TERIFLUNOMIDE
     Dosage: UNK
     Dates: start: 201903, end: 2019
  3. TERIFLUNOMIDE. [Suspect]
     Active Substance: TERIFLUNOMIDE
     Indication: MULTIPLE SCLEROSIS
     Dosage: 14 MG,QD
     Route: 048
     Dates: start: 20130906, end: 201901
  4. TERIFLUNOMIDE. [Suspect]
     Active Substance: TERIFLUNOMIDE
     Dosage: UNK, Q3D
     Dates: start: 20190918, end: 201909
  5. TERIFLUNOMIDE. [Suspect]
     Active Substance: TERIFLUNOMIDE
     Dosage: UNK, QW
     Dates: start: 201909
  6. TERIFLUNOMIDE. [Suspect]
     Active Substance: TERIFLUNOMIDE
     Dosage: 14 MG, EVERY 4-5 DAYS
     Route: 048
     Dates: start: 201908, end: 2019

REACTIONS (43)
  - Abdominal pain [Not Recovered/Not Resolved]
  - Dysgraphia [Unknown]
  - Headache [Not Recovered/Not Resolved]
  - Intentional product misuse [Unknown]
  - Taste disorder [Not Recovered/Not Resolved]
  - Insomnia [Recovered/Resolved]
  - Memory impairment [Unknown]
  - Weight decreased [Recovered/Resolved]
  - Hypersensitivity [Not Recovered/Not Resolved]
  - Muscular weakness [Unknown]
  - Condition aggravated [Not Recovered/Not Resolved]
  - Flatulence [Not Recovered/Not Resolved]
  - Musculoskeletal disorder [Not Recovered/Not Resolved]
  - Feeling cold [Unknown]
  - Feeding disorder [Recovered/Resolved]
  - Asthenopia [Not Recovered/Not Resolved]
  - Gastrooesophageal reflux disease [Not Recovered/Not Resolved]
  - Feeling abnormal [Not Recovered/Not Resolved]
  - Paraesthesia [Recovered/Resolved]
  - Alopecia [Not Recovered/Not Resolved]
  - Muscle spasms [Recovered/Resolved]
  - Visual impairment [Not Recovered/Not Resolved]
  - Eye pain [Not Recovered/Not Resolved]
  - Throat clearing [Unknown]
  - Aerophagia [Not Recovered/Not Resolved]
  - Optic neuritis [Not Recovered/Not Resolved]
  - Dry mouth [Not Recovered/Not Resolved]
  - Osteoporosis [Unknown]
  - Hypoaesthesia [Recovered/Resolved]
  - Unevaluable event [Not Recovered/Not Resolved]
  - Fatigue [Unknown]
  - Stress [Recovered/Resolved]
  - Amnesia [Not Recovered/Not Resolved]
  - Osteoarthritis [Not Recovered/Not Resolved]
  - Pain [Not Recovered/Not Resolved]
  - Musculoskeletal disorder [Unknown]
  - Malaise [Unknown]
  - Oral herpes [Unknown]
  - Back pain [Recovered/Resolved]
  - Abdominal pain upper [Recovered/Resolved]
  - Product dose omission [Unknown]
  - Macular fibrosis [Not Recovered/Not Resolved]
  - Parosmia [Not Recovered/Not Resolved]

NARRATIVE: CASE EVENT DATE: 201309
